FAERS Safety Report 9330912 (Version 3)
Quarter: 2013Q2

REPORT INFORMATION
  Report Type: Spontaneous
  Country: CA (occurrence: CA)
  Receive Date: 20130605
  Receipt Date: 20130619
  Transmission Date: 20140414
  Serious: Yes (Other)
  Sender: FDA-Public Use
  Company Number: CA-PFIZER INC-2013168245

PATIENT
  Age: 65 Year
  Sex: Female

DRUGS (1)
  1. RAMIPRIL [Suspect]
     Indication: HYPERTENSION
     Dosage: UNK
     Route: 065

REACTIONS (9)
  - Chronic obstructive pulmonary disease [Not Recovered/Not Resolved]
  - Cerebrovascular accident [Unknown]
  - Diabetes mellitus [Unknown]
  - Bipolar disorder [Unknown]
  - Depression [Unknown]
  - Anxiety [Unknown]
  - Arthralgia [Unknown]
  - Gait disturbance [Unknown]
  - Tobacco user [Not Recovered/Not Resolved]
